FAERS Safety Report 19873843 (Version 7)
Quarter: 2022Q2

REPORT INFORMATION
  Report Type: Report from Study
  Country: US (occurrence: US)
  Receive Date: 20210922
  Receipt Date: 20220405
  Transmission Date: 20220721
  Serious: Yes (Other)
  Sender: FDA-Public Use
  Company Number: NVSC2021US209461

PATIENT
  Sex: Female

DRUGS (1)
  1. TASIGNA [Suspect]
     Active Substance: NILOTINIB
     Indication: Chronic myeloid leukaemia
     Dosage: UNK
     Route: 065

REACTIONS (10)
  - Pleural effusion [Unknown]
  - Neoplasm malignant [Unknown]
  - Productive cough [Unknown]
  - Chest pain [Unknown]
  - Musculoskeletal chest pain [Unknown]
  - Dyspepsia [Unknown]
  - Abdominal pain upper [Unknown]
  - Dyspnoea [Unknown]
  - Fatigue [Unknown]
  - Incorrect dose administered [Unknown]
